FAERS Safety Report 17552319 (Version 1)
Quarter: 2020Q1

REPORT INFORMATION
  Report Type: Spontaneous
  Country: PT (occurrence: PT)
  Receive Date: 20200317
  Receipt Date: 20200317
  Transmission Date: 20200409
  Serious: Yes (Other)
  Sender: FDA-Public Use
  Company Number: PT-ASTRAZENECA-2020SE35780

PATIENT
  Age: 69 Year
  Sex: Male

DRUGS (11)
  1. HALOPERIDOL. [Interacting]
     Active Substance: HALOPERIDOL
     Route: 065
  2. MEGESTROL GENERIS [Concomitant]
     Route: 065
  3. ALPRAZOLAM. [Concomitant]
     Active Substance: ALPRAZOLAM
     Route: 065
  4. CARVEDILOL. [Interacting]
     Active Substance: CARVEDILOL
     Route: 065
  5. ZYTIGA [Suspect]
     Active Substance: ABIRATERONE ACETATE
     Indication: PROSTATE CANCER
     Route: 048
     Dates: start: 20191223
  6. APIXABAN [Interacting]
     Active Substance: APIXABAN
     Route: 065
  7. ENALAPRIL AND HYDROCHLOROTHIAZIDE [Interacting]
     Active Substance: ENALAPRIL\HYDROCHLOROTHIAZIDE
     Route: 065
  8. TRAMADOL. [Concomitant]
     Active Substance: TRAMADOL
     Route: 065
  9. SILODYX [Concomitant]
     Active Substance: SILODOSIN
     Route: 065
  10. ROSUVASTATIN. [Suspect]
     Active Substance: ROSUVASTATIN
     Route: 048
  11. PANTOPRAZOLE [Concomitant]
     Active Substance: PANTOPRAZOLE
     Route: 065

REACTIONS (4)
  - Hypertension [Unknown]
  - Fatigue [Unknown]
  - Dyspepsia [Unknown]
  - Decreased appetite [Unknown]
